FAERS Safety Report 10892027 (Version 1)
Quarter: 2015Q1

REPORT INFORMATION
  Report Type: Spontaneous
  Country: IT (occurrence: IT)
  Receive Date: 20150306
  Receipt Date: 20150306
  Transmission Date: 20150721
  Serious: Yes (Hospitalization)
  Sender: FDA-Public Use
  Company Number: IT-GALDERMA-IT15001059

PATIENT
  Sex: Female

DRUGS (2)
  1. MIRVASO [Suspect]
     Active Substance: BRIMONIDINE TARTRATE
     Indication: ERYTHEMA
     Dosage: 0.33%
     Route: 061
  2. PLIAGLIS [Suspect]
     Active Substance: LIDOCAINE\TETRACAINE
     Indication: LOCAL ANAESTHESIA
     Dosage: 7%-7%
     Route: 061

REACTIONS (4)
  - Blood potassium decreased [Recovered/Resolved]
  - Blood lactic acid increased [Recovered/Resolved]
  - Product use issue [Recovered/Resolved]
  - Atrioventricular block [Recovered/Resolved]
